FAERS Safety Report 6081798-6 (Version None)
Quarter: 2009Q1

REPORT INFORMATION
  Report Type: 
  Country: None (occurrence: None)
  Receive Date: 20090128
  Receipt Date: 20080917
  Transmission Date: 20090719
  Serious: Yes (Hospitalization, Disabling, Other)
  Sender: FDA-Public Use
  Company Number: ACO_00480_2008

PATIENT
  Sex: Female

DRUGS (5)
  1. ZANAFLEX [Suspect]
     Indication: MULTIPLE SCLEROSIS
     Dosage: (DF)
     Dates: end: 20080514
  2. BACLOFEN [Suspect]
     Indication: MULTIPLE SCLEROSIS
     Dosage: (DF)
     Dates: end: 20080514
  3. NAPROXEN [Concomitant]
  4. SOLU-MEDROL (UNKNOWN) [Concomitant]
  5. COPAXONE /01410902/ (UNKNOWN) [Concomitant]

REACTIONS (1)
  - BREAST CANCER [None]
